FAERS Safety Report 20228154 (Version 1)
Quarter: 2021Q4

REPORT INFORMATION
  Report Type: Spontaneous
  Country: IT (occurrence: IT)
  Receive Date: 20211224
  Receipt Date: 20211224
  Transmission Date: 20220303
  Serious: Yes (Other)
  Sender: FDA-Public Use
  Company Number: IT-UCBSA-2021059530

PATIENT
  Age: 8 Year
  Sex: Male

DRUGS (14)
  1. VIMPAT [Suspect]
     Active Substance: LACOSAMIDE
     Indication: Seizure
     Dosage: UNK
  2. KEPPRA [Suspect]
     Active Substance: LEVETIRACETAM
     Indication: Seizure
     Dosage: UNK
  3. VALPROIC ACID [Suspect]
     Active Substance: VALPROIC ACID
     Indication: Seizure
     Dosage: UNK
  4. TOPIRAMATE [Suspect]
     Active Substance: TOPIRAMATE
     Indication: Seizure
     Dosage: UNK
  5. CARBAMAZEPINE [Suspect]
     Active Substance: CARBAMAZEPINE
     Indication: Seizure
     Dosage: UNK
  6. DIAZEPAM [Concomitant]
     Active Substance: DIAZEPAM
     Indication: Seizure
  7. PHENYTOIN [Concomitant]
     Active Substance: PHENYTOIN
     Indication: Seizure
  8. PHENOBARBITAL [Concomitant]
     Active Substance: PHENOBARBITAL
     Indication: Seizure
  9. KETAMINE [Concomitant]
     Active Substance: KETAMINE
     Indication: Seizure
     Dosage: UNK
  10. KETAMINE [Concomitant]
     Active Substance: KETAMINE
     Dosage: 100 MCG/KG/MIN
  11. PROPOFOL [Concomitant]
     Active Substance: PROPOFOL
     Indication: Seizure
     Dosage: TO 4 MG/KG/H
  12. MIDAZOLAM [Concomitant]
     Active Substance: MIDAZOLAM
     Indication: Seizure
     Dosage: 12 MCG/KG/ MIN
  13. THIOPENTAL [Concomitant]
     Active Substance: THIOPENTAL
     Indication: Seizure
     Dosage: 5 MG/KG/H
  14. IMMUNE GLOBULIN NOS [Concomitant]
     Active Substance: IMMUNE GLOBULIN NOS
     Indication: Seizure
     Dosage: 2 GRAM DAY

REACTIONS (2)
  - Status epilepticus [Unknown]
  - Multiple-drug resistance [Unknown]
